FAERS Safety Report 6964870-5 (Version None)
Quarter: 2010Q3

REPORT INFORMATION
  Report Type: 
  Country: None (occurrence: None)
  Receive Date: 20100903
  Receipt Date: 20100825
  Transmission Date: 20110219
  Serious: Yes (Other)
  Sender: FDA-Public Use
  Company Number: US-JNJFOC-20100803087

PATIENT
  Sex: Female
  Weight: 96.16 kg

DRUGS (8)
  1. SPORANOX [Suspect]
     Indication: SPOROTRICHOSIS
     Route: 048
  2. METFORMIN [Concomitant]
     Indication: DIABETES MELLITUS
     Route: 048
  3. LEVOTHROID [Concomitant]
     Indication: THYROID DISORDER
     Route: 048
  4. ZETIA [Concomitant]
     Indication: HYPERCHOLESTEROLAEMIA
     Route: 048
  5. FENOFIBRATE [Concomitant]
     Indication: HYPERCHOLESTEROLAEMIA
     Route: 048
  6. GLIPIZIDE [Concomitant]
     Indication: DIABETES MELLITUS
     Route: 048
  7. LISINOPRIL [Concomitant]
     Route: 065
  8. AMLODIPINE [Concomitant]
     Route: 065

REACTIONS (7)
  - ALOPECIA [None]
  - BLOOD PRESSURE INCREASED [None]
  - ONYCHOCLASIS [None]
  - OSTEOPENIA [None]
  - PHOTOSENSITIVITY REACTION [None]
  - VITAMIN B12 DEFICIENCY [None]
  - VITAMIN D DEFICIENCY [None]
